FAERS Safety Report 9296834 (Version 1)
Quarter: 2013Q2

REPORT INFORMATION
  Report Type: Spontaneous
  Country: US (occurrence: US)
  Receive Date: 20130517
  Receipt Date: 20130517
  Transmission Date: 20140414
  Serious: No
  Sender: FDA-Public Use
  Company Number: US-PFIZER INC-2013148052

PATIENT
  Sex: Female

DRUGS (2)
  1. TYGACIL [Suspect]
     Dosage: 50 MG,(ADMINISTERED VIA A BAXTER MINIBAG PLUS SYSTEM DELIVERY DEVICE)
  2. TYGACIL [Suspect]
     Dosage: 25 MG, UNK

REACTIONS (3)
  - Infection [Unknown]
  - Motor dysfunction [Unknown]
  - Circumstance or information capable of leading to medication error [Unknown]
